FAERS Safety Report 19103742 (Version 5)
Quarter: 2021Q4

REPORT INFORMATION
  Report Type: Spontaneous
  Country: US (occurrence: US)
  Receive Date: 20210407
  Receipt Date: 20211105
  Transmission Date: 20220303
  Serious: No
  Sender: FDA-Public Use
  Company Number: US-PFIZER INC-2021251647

PATIENT
  Age: 60 Year
  Sex: Female

DRUGS (3)
  1. XELJANZ XR [Suspect]
     Active Substance: TOFACITINIB CITRATE
     Indication: Rheumatoid arthritis
     Dosage: 11 MG, 1X/DAY
     Route: 048
     Dates: start: 20210211, end: 20210823
  2. MAXALT [Concomitant]
     Active Substance: RIZATRIPTAN BENZOATE
     Indication: Migraine
     Dosage: UNK
  3. MAXALT [Concomitant]
     Active Substance: RIZATRIPTAN BENZOATE
     Indication: Headache

REACTIONS (6)
  - Headache [Recovering/Resolving]
  - Feeling abnormal [Unknown]
  - Sinusitis [Unknown]
  - Ear infection [Not Recovered/Not Resolved]
  - Arthralgia [Unknown]
  - Colitis [Unknown]

NARRATIVE: CASE EVENT DATE: 20210101
